FAERS Safety Report 6171376-2 (Version None)
Quarter: 2009Q2

REPORT INFORMATION
  Report Type: 
  Country: None (occurrence: None)
  Receive Date: 20090429
  Receipt Date: 20090420
  Transmission Date: 20091009
  Serious: Yes (Life-Threatening)
  Sender: FDA-Public Use
  Company Number: CN-PFIZER INC-2009201601

PATIENT

DRUGS (1)
  1. ZITHROMAX [Suspect]
     Indication: LUNG INFECTION
     Route: 042

REACTIONS (1)
  - ANAPHYLACTIC SHOCK [None]
